FAERS Safety Report 13887802 (Version 1)
Quarter: 2017Q3

REPORT INFORMATION
  Report Type: Spontaneous
  Country: US (occurrence: US)
  Receive Date: 20170821
  Receipt Date: 20170821
  Transmission Date: 20171127
  Serious: No
  Sender: FDA-Public Use
  Company Number: US-BRISTOL-MYERS SQUIBB COMPANY-BMS-2017-074409

PATIENT
  Age: 62 Year
  Sex: Female

DRUGS (2)
  1. MEGESTROL ACETATE. [Suspect]
     Active Substance: MEGESTROL ACETATE
     Indication: METASTASES TO LUNG
     Route: 065
  2. MEGESTROL ACETATE. [Suspect]
     Active Substance: MEGESTROL ACETATE
     Indication: ENDOMETRIAL ADENOCARCINOMA
     Route: 065

REACTIONS (3)
  - Lymphoedema [Unknown]
  - Weight increased [Unknown]
  - Product use in unapproved indication [Unknown]
